FAERS Safety Report 4358425-9 (Version None)
Quarter: 2004Q2

REPORT INFORMATION
  Report Type: 
  Country: None (occurrence: None)
  Receive Date: 20040514
  Receipt Date: 20040507
  Transmission Date: 20050107
  Serious: Yes (Hospitalization)
  Sender: FDA-Public Use
  Company Number: US-ROCHE-366972

PATIENT
  Age: 54 Year
  Sex: Male
  Weight: 130.8 kg

DRUGS (4)
  1. MYCOPHENOLATE MOFETIL [Suspect]
     Indication: RENAL TRANSPLANT
     Route: 048
     Dates: start: 20010607
  2. BLINDED MYCOPHENOLATE MOFETIL [Suspect]
     Indication: RENAL TRANSPLANT
     Route: 065
     Dates: start: 19990716, end: 20010606
  3. NEORAL [Concomitant]
     Dates: start: 19990717
  4. PREDNISOLONE [Concomitant]
     Dates: start: 20020117

REACTIONS (4)
  - CELLULITIS [None]
  - FALL [None]
  - JOINT INJURY [None]
  - NEUROPATHIC ARTHROPATHY [None]
